FAERS Safety Report 9741434 (Version 1)
Quarter: 2013Q4

REPORT INFORMATION
  Report Type: Report from Study
  Country: US (occurrence: US)
  Receive Date: 20131209
  Receipt Date: 20131209
  Transmission Date: 20140711
  Serious: Yes (Other)
  Sender: FDA-Public Use
  Company Number: PHEH2013US025257

PATIENT
  Age: 58 Year
  Sex: Male

DRUGS (12)
  1. ZOMETA [Suspect]
     Indication: PLASMA CELL MYELOMA
  2. ACYCLOVIR [Concomitant]
  3. FOLIC ACID [Concomitant]
  4. GABAPENTIN [Concomitant]
  5. HYDROCODONE W/APAP [Concomitant]
  6. LORAZEPAM [Concomitant]
  7. MULTIVITAMIN [Concomitant]
  8. OMEPRAZOLE [Concomitant]
  9. VELCADE [Concomitant]
  10. VITAMIN B [Concomitant]
  11. VITAMIN D3 [Concomitant]
  12. VITAMIN E [Concomitant]

REACTIONS (2)
  - Spinal fracture [Unknown]
  - Depression [Unknown]
